FAERS Safety Report 9886301 (Version 2)
Quarter: 2014Q1

REPORT INFORMATION
  Report Type: Report from Study
  Country: US (occurrence: US)
  Receive Date: 20140210
  Receipt Date: 20140325
  Transmission Date: 20141002
  Serious: Yes (Hospitalization)
  Sender: FDA-Public Use
  Company Number: US-VERTEX PHARMACEUTICALS INC-2014-000545

PATIENT
  Age: 59 Year
  Sex: Female
  Weight: 72 kg

DRUGS (5)
  1. VX-950 (TELAPREVIR) [Suspect]
     Indication: HEPATITIS C
     Dosage: 750 MG, TID
     Route: 048
     Dates: start: 20140127, end: 20140305
  2. COPEGUS [Suspect]
     Indication: HEPATITIS C
     Dosage: 2 PILLS AM, 3 PILLS PM
     Dates: start: 20140127
  3. COPEGUS [Suspect]
     Dosage: 3 PILLS PM
     Dates: start: 20140320
  4. PEGASYS [Suspect]
     Indication: HEPATITIS C
     Dosage: 180 ?G, QW
     Route: 058
     Dates: start: 20140127
  5. SOLVADI [Concomitant]
     Indication: HEPATITIS C
     Dosage: 1 DF, UNK
     Dates: start: 20140306

REACTIONS (2)
  - Blood count abnormal [Recovering/Resolving]
  - Headache [Not Recovered/Not Resolved]
